FAERS Safety Report 8236344 (Version 2)
Quarter: 2013Q4

REPORT INFORMATION
  Report Type: Report from Study
  Country: US (occurrence: US)
  Receive Date: 20111108
  Receipt Date: 20131230
  Transmission Date: 20140711
  Serious: Yes (Hospitalization)
  Sender: FDA-Public Use
  Company Number: US-ACTELION-A-US2011-56437

PATIENT
  Age: 64 Year
  Sex: Female
  Weight: 50 kg

DRUGS (6)
  1. TRACLEER [Suspect]
     Indication: PULMONARY ARTERIAL HYPERTENSION
     Dosage: 125 MG, BID
     Route: 048
     Dates: start: 20110601
  2. TRACLEER [Suspect]
     Dosage: 62.5 MG, BID
     Route: 048
     Dates: start: 20110418, end: 20110531
  3. FLOLAN [Concomitant]
     Route: 042
  4. COUMADIN [Concomitant]
  5. OXYGEN [Concomitant]
  6. DIGOXIN [Concomitant]

REACTIONS (3)
  - Catheter site infection [Recovering/Resolving]
  - Fluid retention [Recovering/Resolving]
  - Central venous catheter removal [Recovering/Resolving]
